FAERS Safety Report 16213603 (Version 3)
Quarter: 2019Q3

REPORT INFORMATION
  Report Type: Spontaneous
  Country: US (occurrence: US)
  Receive Date: 20190418
  Receipt Date: 20190828
  Transmission Date: 20191004
  Serious: Yes (Other)
  Sender: FDA-Public Use
  Company Number: US-TAKEDA-2019TUS010327

PATIENT

DRUGS (47)
  1. LANSOPRAZOLE. [Suspect]
     Active Substance: LANSOPRAZOLE
     Indication: PRODUCT USED FOR UNKNOWN INDICATION
     Dosage: UNK
     Route: 048
  2. ZEGERID                            /00661201/ [Suspect]
     Active Substance: OMEPRAZOLE
     Indication: PRODUCT USED FOR UNKNOWN INDICATION
     Dosage: UNK
     Route: 048
  3. VENLAFAXINE [Concomitant]
     Active Substance: VENLAFAXINE HYDROCHLORIDE
     Dosage: UNK
     Dates: start: 2013
  4. HYDROCHLOROTHIAZIDE. [Concomitant]
     Active Substance: HYDROCHLOROTHIAZIDE
     Dosage: 25 MG, UNK
     Dates: start: 2016, end: 2017
  5. ZANTAC 75 [Concomitant]
     Active Substance: RANITIDINE HYDROCHLORIDE
     Dosage: UNK
  6. PEG-3350 AND ELECTROLYTES [Concomitant]
     Active Substance: POLYETHYLENE GLYCOL 3350\POTASSIUM CHLORIDE\SODIUM BICARBONATE\SODIUM CHLORIDE\SODIUM SULFATE\SODIUM SULFATE ANHYDROUS
     Dosage: UNK
     Dates: start: 2013
  7. ZANTAC 75 (OTC) [Concomitant]
     Dosage: UNK
  8. GABAPENTIN. [Concomitant]
     Active Substance: GABAPENTIN
     Dosage: 600 MG, UNK
     Dates: start: 2012, end: 2014
  9. LISINOPRIL. [Concomitant]
     Active Substance: LISINOPRIL
     Dosage: 20 MG, UNK
     Dates: start: 2012, end: 2013
  10. PENICILLIN                         /00000901/ [Concomitant]
     Active Substance: PENICILLIN G
     Dosage: 500 MILLIGRAM
     Dates: start: 2012
  11. PROAIR HFA [Concomitant]
     Active Substance: ALBUTEROL SULFATE
     Dosage: 90 UG, UNK
     Dates: start: 2013
  12. ZANTAC 150 (OTC) [Concomitant]
     Dosage: UNK
  13. OMEPRAZOLE. [Suspect]
     Active Substance: OMEPRAZOLE
     Indication: PRODUCT USED FOR UNKNOWN INDICATION
     Dosage: UNK
     Route: 048
  14. VENLAFAXINE [Concomitant]
     Active Substance: VENLAFAXINE HYDROCHLORIDE
     Dosage: UNK
     Dates: start: 2015, end: 2018
  15. LEVOTHYROXINE. [Concomitant]
     Active Substance: LEVOTHYROXINE
     Dosage: 50 UG, UNK
     Dates: start: 2013, end: 2014
  16. LISINOPRIL. [Concomitant]
     Active Substance: LISINOPRIL
     Dosage: 20 MG, UNK
     Dates: start: 2016, end: 2017
  17. ONDASETRON                         /00955301/ [Concomitant]
     Active Substance: ONDANSETRON
     Dosage: 150 MILLIGRAM
     Dates: start: 2012, end: 2014
  18. CYMBALTA [Concomitant]
     Active Substance: DULOXETINE HYDROCHLORIDE
     Dosage: 30 MG, UNK
     Dates: start: 2013
  19. METRONIDAZOLE. [Concomitant]
     Active Substance: METRONIDAZOLE
     Dosage: 500 MG, UNK
     Dates: start: 2014
  20. ONDANSETRON HCL ER [Concomitant]
     Dosage: 150 MG, UNK
     Dates: start: 2012, end: 2014
  21. PENICILLIN VK [Concomitant]
     Active Substance: PENICILLIN V POTASSIUM
     Dosage: 500 MG, UNK
     Dates: start: 2012
  22. PREVACID [Suspect]
     Active Substance: LANSOPRAZOLE
     Indication: PRODUCT USED FOR UNKNOWN INDICATION
     Dosage: UNK
     Route: 048
  23. PREVACID 24 HR [Suspect]
     Active Substance: LANSOPRAZOLE
     Indication: GASTROOESOPHAGEAL REFLUX DISEASE
     Dosage: UNK
     Route: 048
  24. PANTOPRAZOLE [Suspect]
     Active Substance: PANTOPRAZOLE
     Indication: PRODUCT USED FOR UNKNOWN INDICATION
     Dosage: UNK
     Route: 048
  25. LEVOTHYROXINE. [Concomitant]
     Active Substance: LEVOTHYROXINE
     Dosage: 50 UG, UNK
     Dates: start: 2016, end: 2018
  26. HYDROCODONE BITARTRATE AND ACETAMINOPHEN [Concomitant]
     Active Substance: ACETAMINOPHEN\HYDROCODONE BITARTRATE
     Dosage: UNK
     Dates: start: 2012, end: 2013
  27. BACLOFEN. [Concomitant]
     Active Substance: BACLOFEN
     Dosage: 10 MG, UNK
     Dates: start: 2014, end: 2015
  28. CIMETIDINE [Concomitant]
     Active Substance: CIMETIDINE
     Dosage: UNK
  29. PROTONIX [Suspect]
     Active Substance: PANTOPRAZOLE SODIUM
     Indication: PRODUCT USED FOR UNKNOWN INDICATION
     Dosage: UNK
     Route: 048
  30. TOPIRAMATE. [Concomitant]
     Active Substance: TOPIRAMATE
     Dosage: 100 MG, UNK
     Dates: start: 2015, end: 2017
  31. CYPROHEPTADINE. [Concomitant]
     Active Substance: CYPROHEPTADINE
  32. TRAZODONE [Concomitant]
     Active Substance: TRAZODONE HYDROCHLORIDE
     Dosage: 50 MG, UNK
     Dates: start: 2012
  33. FLUARIX QUADRIVALENT [Concomitant]
     Dosage: UNK
     Dates: start: 2017
  34. METHYLPREDNISOLONE. [Concomitant]
     Active Substance: METHYLPREDNISOLONE
     Dosage: UNK
     Dates: start: 2018
  35. VENLAFAXINE HCL [Concomitant]
     Active Substance: VENLAFAXINE HYDROCHLORIDE
     Dosage: 150 MG, UNK
     Dates: start: 2013
  36. SUMATRIPTAN SUCCINATE. [Concomitant]
     Active Substance: SUMATRIPTAN SUCCINATE
     Dosage: 100 MG, UNK
     Dates: start: 2016, end: 2017
  37. CIMETIDINE [Concomitant]
     Active Substance: CIMETIDINE
     Dosage: UNK
  38. HYDROCODONE/ACETAMINOPHEN [Concomitant]
     Active Substance: ACETAMINOPHEN\HYDROCODONE
     Dosage: UNK
     Dates: start: 2012, end: 2013
  39. PRILOSEC [Suspect]
     Active Substance: OMEPRAZOLE MAGNESIUM
     Indication: PRODUCT USED FOR UNKNOWN INDICATION
     Dosage: UNK
     Route: 048
  40. CYPROHEPTADINE. [Concomitant]
     Active Substance: CYPROHEPTADINE
     Dosage: 4 MG, UNK
     Dates: start: 2012, end: 2014
  41. VENLAFAXINE HCL [Concomitant]
     Active Substance: VENLAFAXINE HYDROCHLORIDE
     Dosage: 150 MG, UNK
     Dates: start: 2015, end: 2018
  42. PREVACID [Suspect]
     Active Substance: LANSOPRAZOLE
     Dosage: UNK
     Route: 048
     Dates: start: 1989
  43. NEXIUM [Suspect]
     Active Substance: ESOMEPRAZOLE MAGNESIUM
     Indication: PRODUCT USED FOR UNKNOWN INDICATION
     Dosage: UNK
     Route: 048
  44. OMEPRAZOLE MAGNESIUM. [Suspect]
     Active Substance: OMEPRAZOLE MAGNESIUM
     Indication: PRODUCT USED FOR UNKNOWN INDICATION
     Dosage: UNK
     Route: 048
  45. SUMATRIPTAN SUCCINATE. [Concomitant]
     Active Substance: SUMATRIPTAN SUCCINATE
     Dosage: 100 MG, UNK
     Dates: start: 2013, end: 2014
  46. HYDROCHLOROTHIAZIDE. [Concomitant]
     Active Substance: HYDROCHLOROTHIAZIDE
     Dosage: 25 MG, UNK
     Dates: start: 2013, end: 2014
  47. AMOXICILLIN. [Concomitant]
     Active Substance: AMOXICILLIN
     Dosage: 500 MG, UNK
     Dates: start: 2013

REACTIONS (3)
  - Renal impairment [Not Recovered/Not Resolved]
  - Acute kidney injury [Unknown]
  - Chronic kidney disease [Unknown]

NARRATIVE: CASE EVENT DATE: 2014
